FAERS Safety Report 9468591 (Version 2)
Quarter: 2013Q3

REPORT INFORMATION
  Report Type: Spontaneous
  Country: US (occurrence: None)
  Receive Date: 20130816
  Receipt Date: 20130905
  Transmission Date: 20140515
  Serious: Yes (Other)
  Sender: FDA-Public Use
  Company Number: US-PULSION-2013-0063

PATIENT
  Sex: 0

DRUGS (1)
  1. ICG-PULSION [Suspect]
     Indication: LAPAROSCOPY
     Dosage: SINGLE DOSE
     Route: 042
     Dates: start: 201306, end: 201306

REACTIONS (1)
  - Anaphylactic reaction [None]
